FAERS Safety Report 14619776 (Version 2)
Quarter: 2018Q1

REPORT INFORMATION
  Report Type: Spontaneous
  Country: FR (occurrence: FR)
  Receive Date: 20180309
  Receipt Date: 20180321
  Transmission Date: 20180509
  Serious: Yes (Other)
  Sender: FDA-Public Use
  Company Number: FR-ASTRAZENECA-2018SE28922

PATIENT
  Sex: Female

DRUGS (1)
  1. OLAPARIB. [Suspect]
     Active Substance: OLAPARIB
     Route: 048

REACTIONS (3)
  - Myelodysplastic syndrome [Unknown]
  - Acute myeloid leukaemia [Unknown]
  - Disease progression [Unknown]
